FAERS Safety Report 7276238-5 (Version None)
Quarter: 2011Q1

REPORT INFORMATION
  Report Type: 
  Country: None (occurrence: None)
  Receive Date: 20110204
  Receipt Date: 20110127
  Transmission Date: 20110831
  Serious: Yes (Hospitalization, Other)
  Sender: FDA-Public Use
  Company Number: PHHO2011US01915

PATIENT
  Sex: Male
  Weight: 93 kg

DRUGS (5)
  1. TEMOZOLOMIDE [Suspect]
     Indication: GLIOBLASTOMA
     Dosage: UNK
     Dates: start: 20101108, end: 20101212
  2. AFINITOR [Suspect]
     Indication: GLIOBLASTOMA
     Dosage: UNK
     Route: 048
     Dates: start: 20101108, end: 20101220
  3. TEMOZOLOMIDE [Suspect]
     Dosage: NO TREATMENT
     Dates: start: 20101213, end: 20101213
  4. RADIATION [Suspect]
     Indication: GLIOBLASTOMA
     Dosage: UNK
     Dates: start: 20101108, end: 20101228
  5. TEMOZOLOMIDE [Suspect]
     Dosage: UNK
     Dates: start: 20101214, end: 20101228

REACTIONS (10)
  - HAEMATOMA EVACUATION [None]
  - SYNCOPE [None]
  - SINUS BRADYCARDIA [None]
  - LEUKOPENIA [None]
  - LYMPHOPENIA [None]
  - DEEP VEIN THROMBOSIS [None]
  - NEUTROPENIA [None]
  - POST PROCEDURAL HAEMATOMA [None]
  - LOSS OF CONSCIOUSNESS [None]
  - CARDIAC PACEMAKER INSERTION [None]
